FAERS Safety Report 20209516 (Version 3)
Quarter: 2022Q1

REPORT INFORMATION
  Report Type: Spontaneous
  Country: US (occurrence: None)
  Receive Date: 20211221
  Receipt Date: 20220315
  Transmission Date: 20220423
  Serious: Yes (Other)
  Sender: FDA-Public Use
  Company Number: US-ROCHE-2983529

PATIENT
  Sex: Female

DRUGS (7)
  1. OCREVUS [Suspect]
     Active Substance: OCRELIZUMAB
     Indication: Multiple sclerosis
     Dosage: 300 MG/ 10 ML
     Route: 042
     Dates: start: 20200625
  2. AMPYRA [Concomitant]
     Active Substance: DALFAMPRIDINE
  3. IBUPROFEN [Concomitant]
     Active Substance: IBUPROFEN
  4. VESICARE [Concomitant]
     Active Substance: SOLIFENACIN SUCCINATE
  5. MAGNESIUM [Concomitant]
     Active Substance: MAGNESIUM
  6. IRON [Concomitant]
     Active Substance: IRON
  7. WELLBUTRIN [Concomitant]
     Active Substance: BUPROPION HYDROCHLORIDE

REACTIONS (3)
  - Multiple sclerosis relapse [Unknown]
  - Disease progression [Unknown]
  - Drug ineffective [Unknown]
